FAERS Safety Report 19145644 (Version 3)
Quarter: 2021Q3

REPORT INFORMATION
  Report Type: Report from Study
  Country: US (occurrence: US)
  Receive Date: 20210416
  Receipt Date: 20210707
  Transmission Date: 20211014
  Serious: Yes (Hospitalization, Other)
  Sender: FDA-Public Use
  Company Number: US-GLAXOSMITHKLINE-US2021AMR035658

PATIENT
  Age: 71 Year
  Sex: Female

DRUGS (3)
  1. NIRAPARIB [Suspect]
     Active Substance: NIRAPARIB
     Indication: OVARIAN CANCER
     Dosage: 200 MG, QD (CURRENTLY TAKING AT BEDTIME)
     Route: 048
     Dates: start: 202101
  2. NIRAPARIB [Suspect]
     Active Substance: NIRAPARIB
     Dosage: 200 MG, QD
     Dates: start: 202102
  3. NIRAPARIB [Suspect]
     Active Substance: NIRAPARIB
     Dosage: 200 MG, QD
     Route: 048

REACTIONS (16)
  - Diarrhoea [Unknown]
  - Sneezing [Unknown]
  - Fear [Unknown]
  - Blood disorder [Unknown]
  - Blood pressure increased [Unknown]
  - Near death experience [Not Recovered/Not Resolved]
  - Heart rate increased [Unknown]
  - Liver disorder [Not Recovered/Not Resolved]
  - Blood count abnormal [Not Recovered/Not Resolved]
  - Illness [Not Recovered/Not Resolved]
  - Myocardial infarction [Unknown]
  - Rhinorrhoea [Unknown]
  - Dyspnoea [Unknown]
  - Migraine [Unknown]
  - Gait inability [Unknown]
  - Off label use [Unknown]

NARRATIVE: CASE EVENT DATE: 202101
